FAERS Safety Report 13611364 (Version 1)
Quarter: 2017Q2

REPORT INFORMATION
  Report Type: Spontaneous
  Country: US (occurrence: US)
  Receive Date: 20170601
  Receipt Date: 20170601
  Transmission Date: 20170830
  Serious: Yes (Disabling, Other)
  Sender: FDA-Public Use
  Company Number: None

PATIENT
  Age: 53 Year
  Sex: Female
  Weight: 78.75 kg

DRUGS (5)
  1. VITAMIN D [Concomitant]
     Active Substance: CHOLECALCIFEROL
  2. COMBO SHOT (HUMAN CHORIONIC GONADOTROPIN) [Suspect]
     Active Substance: CHORIOGONADOTROPIN ALFA
     Indication: WEIGHT CONTROL
     Dosage: ?          OTHER FREQUENCY:3 TIMES PER WEEK;?
     Route: 030
  3. LEVOFLOXACIN. [Concomitant]
     Active Substance: LEVOFLOXACIN
  4. VITAMIN E [Concomitant]
     Active Substance: .ALPHA.-TOCOPHEROL
  5. COMBO SHOT (VITAMIN B6, VITAMIN B12) [Suspect]
     Active Substance: CYANOCOBALAMIN\PYRIDOXINE
     Indication: WEIGHT CONTROL

REACTIONS (4)
  - Injection site reaction [None]
  - Product quality issue [None]
  - Injection site bruising [None]
  - Product contamination [None]

NARRATIVE: CASE EVENT DATE: 20170228
